FAERS Safety Report 11470490 (Version 2)
Quarter: 2015Q3

REPORT INFORMATION
  Report Type: Spontaneous
  Country: US (occurrence: US)
  Receive Date: 20150903
  Receipt Date: 20150903
  Transmission Date: 20151125
  Serious: No
  Sender: FDA-Public Use
  Company Number: US-ELI_LILLY_AND_COMPANY-US201112005435

PATIENT
  Age: 43 Year
  Sex: Female

DRUGS (3)
  1. AMBIEN [Concomitant]
     Active Substance: ZOLPIDEM TARTRATE
  2. NAPROXEN. [Concomitant]
     Active Substance: NAPROXEN
  3. CYMBALTA [Suspect]
     Active Substance: DULOXETINE HYDROCHLORIDE
     Indication: NEURALGIA
     Dosage: 30 MG, SINGLE
     Dates: start: 20111213, end: 20111213

REACTIONS (13)
  - Nausea [Unknown]
  - Off label use [Recovered/Resolved]
  - Muscle tightness [Unknown]
  - Muscle spasms [Unknown]
  - Trismus [Unknown]
  - Respiratory rate increased [Unknown]
  - Micturition urgency [Unknown]
  - Heart rate increased [Unknown]
  - Pain [Unknown]
  - Abdominal pain upper [Unknown]
  - Feeling cold [Unknown]
  - Influenza like illness [Unknown]
  - Dry mouth [Unknown]

NARRATIVE: CASE EVENT DATE: 20111213
